FAERS Safety Report 21446600 (Version 2)
Quarter: 2022Q4

REPORT INFORMATION
  Report Type: Report from Study
  Country: US (occurrence: US)
  Receive Date: 20221012
  Receipt Date: 20221116
  Transmission Date: 20230113
  Serious: No
  Sender: FDA-Public Use
  Company Number: US-NOVARTISTESTPH-NVSC2022US230139

PATIENT
  Sex: Male

DRUGS (1)
  1. TASIGNA [Suspect]
     Active Substance: NILOTINIB
     Indication: Philadelphia positive chronic myeloid leukaemia
     Dosage: 300 MG, BID
     Route: 048

REACTIONS (7)
  - Renal pain [Recovering/Resolving]
  - Influenza [Unknown]
  - Back pain [Recovering/Resolving]
  - Insomnia [Recovering/Resolving]
  - White blood cell count decreased [Unknown]
  - Nausea [Recovering/Resolving]
  - Vomiting [Unknown]
